FAERS Safety Report 24334434 (Version 1)
Quarter: 2024Q3

REPORT INFORMATION
  Report Type: Spontaneous
  Country: US (occurrence: US)
  Receive Date: 20240918
  Receipt Date: 20240918
  Transmission Date: 20241017
  Serious: No
  Sender: ROCHE
  Company Number: US-ROCHE-10000083857

PATIENT
  Sex: Male

DRUGS (3)
  1. HEMLIBRA [Suspect]
     Active Substance: EMICIZUMAB-KXWH
     Indication: Factor VIII deficiency
     Dosage: STRENGTH- 105 MG/ML, 150MG/ML
     Route: 058
     Dates: start: 202110
  2. altuviiio injection [Concomitant]
  3. recombinate injection [Concomitant]

REACTIONS (1)
  - Haemorrhage [Unknown]
